FAERS Safety Report 6214110-X (Version None)
Quarter: 2009Q2

REPORT INFORMATION
  Report Type: 
  Country: None (occurrence: None)
  Receive Date: 20090604
  Receipt Date: 20090529
  Transmission Date: 20091009
  Serious: Yes (Hospitalization)
  Sender: FDA-Public Use
  Company Number: US-ROCHE-635549

PATIENT
  Sex: Male
  Weight: 112.9 kg

DRUGS (4)
  1. TORADOL [Suspect]
     Indication: DRUG USE FOR UNKNOWN INDICATION
     Route: 065
  2. REMICADE [Suspect]
     Indication: CROHN'S DISEASE
     Dosage: FORM: LYOPHILIZED POWDER
     Route: 042
     Dates: start: 20060801
  3. REMICADE [Suspect]
     Route: 042
  4. FLAGYL [Concomitant]

REACTIONS (8)
  - BLOOD GLUCOSE DECREASED [None]
  - BLOOD PRESSURE DECREASED [None]
  - CROHN'S DISEASE [None]
  - DRUG HYPERSENSITIVITY [None]
  - FAECAL INCONTINENCE [None]
  - HYPERHIDROSIS [None]
  - RASH [None]
  - URINARY INCONTINENCE [None]
